FAERS Safety Report 18117278 (Version 1)
Quarter: 2020Q3

REPORT INFORMATION
  Report Type: Spontaneous
  Country: PT (occurrence: PT)
  Receive Date: 20200805
  Receipt Date: 20200805
  Transmission Date: 20201103
  Serious: Yes (Other)
  Sender: FDA-Public Use
  Company Number: PT-BAXTER-2020BAX015291

PATIENT
  Age: 66 Year
  Sex: Male

DRUGS (9)
  1. CYCLOPHOSPHAMIDE. [Concomitant]
     Active Substance: CYCLOPHOSPHAMIDE
     Dosage: 1 MG, D
     Route: 042
  2. AMOXICILLIN. [Concomitant]
     Active Substance: AMOXICILLIN
     Indication: ACTINOMYCOSIS
     Route: 048
     Dates: start: 200507
  3. THALOMID [Suspect]
     Active Substance: THALIDOMIDE
     Indication: PLASMA CELL MYELOMA
     Dosage: 100 MG, QD
     Route: 048
  4. CYCLOPHOSPHAMIDE. [Concomitant]
     Active Substance: CYCLOPHOSPHAMIDE
     Indication: PLASMA CELL MYELOMA
     Dosage: UNK, QMO
     Route: 042
  5. FILGRASTIM [Concomitant]
     Active Substance: FILGRASTIM
     Indication: PRODUCT USED FOR UNKNOWN INDICATION
     Dosage: 30000000 U, QMO
     Route: 058
  6. ERYTHROPOIETIN [Concomitant]
     Active Substance: ERYTHROPOIETIN
     Indication: PLASMA CELL MYELOMA
     Dosage: 30000 U,D
     Route: 058
  7. ENDOXAN PO PARA SOLUCAO INJECTAVEL 1000 MG [Suspect]
     Active Substance: CYCLOPHOSPHAMIDE
     Indication: PLASMA CELL MYELOMA
     Dosage: 1 MG, D
     Route: 017
  8. ?CIDO ZOLEDRONICO CLARIS 4 MG/5 ML CONCENTRADO PARA SOLUC?O PARA PERFU [Suspect]
     Active Substance: ZOLEDRONIC ACID
     Indication: PRODUCT USED FOR UNKNOWN INDICATION
     Dosage: 4 MG, QMO
     Route: 042
  9. DEXAMETHASONE. [Suspect]
     Active Substance: DEXAMETHASONE
     Indication: PLASMA CELL MYELOMA
     Dosage: 40 MG/FOR 4 DAYS EVERY MONTH
     Route: 048

REACTIONS (12)
  - Excessive granulation tissue [Unknown]
  - Pain in jaw [Unknown]
  - Mastication disorder [Unknown]
  - Impaired healing [Unknown]
  - Bone disorder [Unknown]
  - Osteonecrosis of jaw [Recovering/Resolving]
  - Abscess [Unknown]
  - Tooth extraction [Unknown]
  - Osteonecrosis [Unknown]
  - Osteomyelitis [Unknown]
  - Bacterial infection [Unknown]
  - Debridement [Unknown]

NARRATIVE: CASE EVENT DATE: 200507
